FAERS Safety Report 19874666 (Version 3)
Quarter: 2021Q4

REPORT INFORMATION
  Report Type: Report from Study
  Country: BR (occurrence: BR)
  Receive Date: 20210922
  Receipt Date: 20211105
  Transmission Date: 20220303
  Serious: Yes (Other)
  Sender: FDA-Public Use
  Company Number: BR-NOVARTISPH-NVSC2021BR208841

PATIENT
  Age: 80 Year
  Sex: Male

DRUGS (4)
  1. ENTRESTO [Suspect]
     Active Substance: SACUBITRIL\VALSARTAN
     Indication: Cardiac failure
     Dosage: UNK (WEAKEST DOSE)
     Route: 065
  2. ENTRESTO [Suspect]
     Active Substance: SACUBITRIL\VALSARTAN
     Indication: Hypertension
     Dosage: 1 DF
     Route: 065
     Dates: start: 202011
  3. ENTRESTO [Suspect]
     Active Substance: SACUBITRIL\VALSARTAN
     Indication: Cardiac dysfunction
     Dosage: 200 MG (SACUBITRIL: 97 MG AND VALSARTAN: 103 MG), BID
     Route: 065
     Dates: start: 2021
  4. ENTRESTO [Suspect]
     Active Substance: SACUBITRIL\VALSARTAN
     Dosage: UNK DF
     Route: 065

REACTIONS (12)
  - Infarction [Unknown]
  - Myocardial infarction [Unknown]
  - Cardiac failure [Unknown]
  - Fear of death [Unknown]
  - Fibrosis [Unknown]
  - Adulterated product [Not Recovered/Not Resolved]
  - Product physical issue [Not Recovered/Not Resolved]
  - Blood pressure fluctuation [Not Recovered/Not Resolved]
  - Cardiac disorder [Unknown]
  - Blood pressure increased [Not Recovered/Not Resolved]
  - Drug ineffective [Unknown]
  - Expired product administered [Unknown]
